FAERS Safety Report 8457203-9 (Version None)
Quarter: 2012Q2

REPORT INFORMATION
  Report Type: 
  Country: None (occurrence: None)
  Receive Date: 20120621
  Receipt Date: 20120619
  Transmission Date: 20120825
  Serious: Yes (Hospitalization, Other)
  Sender: FDA-Public Use
  Company Number: PHHY2012JP046260

PATIENT
  Age: 75 Year
  Sex: Male

DRUGS (7)
  1. HICORT [Concomitant]
     Dosage: 4 MG
     Dates: start: 20100523, end: 20120525
  2. CALCIUM CHANNEL BLOCKERS [Concomitant]
     Indication: HYPERTENSION
     Route: 048
  3. TRICHLORMETHIAZIDE [Suspect]
     Dosage: 1 MG, DAILY
     Route: 048
  4. AMLODIPINE [Concomitant]
     Indication: HYPERTENSION
     Dosage: 5 MG
     Route: 048
  5. ALLOPURINOL [Suspect]
     Dosage: 100 MG, DAILY
     Route: 048
  6. DIOVAN [Suspect]
     Indication: HYPERTENSION
     Dosage: 160 MG, DAILY
     Route: 048
  7. ASPIRIN [Concomitant]
     Dosage: 100 MG, UNK

REACTIONS (4)
  - CHOKING SENSATION [None]
  - PHARYNGEAL OEDEMA [None]
  - DYSPHONIA [None]
  - INTERSTITIAL LUNG DISEASE [None]
